FAERS Safety Report 4775752-1 (Version None)
Quarter: 2005Q3

REPORT INFORMATION
  Report Type: 
  Country: None (occurrence: None)
  Receive Date: 20050922
  Receipt Date: 20050912
  Transmission Date: 20060218
  Serious: Yes (Hospitalization)
  Sender: FDA-Public Use
  Company Number: FI-SOLVAY-00305002960

PATIENT
  Age: 51 Year
  Sex: Female

DRUGS (5)
  1. MIRTAZAPINE [Concomitant]
     Indication: ILL-DEFINED DISORDER
     Dosage: DAILY DOSE:  UNKNOWN
     Route: 065
     Dates: end: 20041101
  2. FEVARIN 50 MG [Suspect]
     Indication: DEPRESSION
     Dosage: DAILY DOSE: 50 MILLIGRAM(S)
     Route: 048
     Dates: start: 20041021, end: 20041024
  3. FEVARIN 50 MG [Suspect]
     Dosage: DAILY DOSE: 100 MILLIGRAM(S)
     Route: 048
     Dates: start: 20041025, end: 20041107
  4. FEVARIN 50 MG [Suspect]
     Dosage: DAILY DOSE: 150 MILLIGRAM(S)
     Route: 048
     Dates: start: 20041108, end: 20041101
  5. FEVARIN 50 MG [Suspect]
     Dosage: DAILY DOSE:  UNKNOWN
     Route: 048
     Dates: start: 20041101

REACTIONS (4)
  - HAEMATOMA [None]
  - MIGRAINE [None]
  - NAUSEA [None]
  - PRURITUS [None]
